FAERS Safety Report 4619032-3 (Version None)
Quarter: 2005Q1

REPORT INFORMATION
  Report Type: 
  Country: None (occurrence: None)
  Receive Date: 20050325
  Receipt Date: 20041027
  Transmission Date: 20050727
  Serious: Yes (Hospitalization)
  Sender: FDA-Public Use
  Company Number: BE-ROCHE-384327

PATIENT
  Age: 34 Year
  Sex: Male
  Weight: 70 kg

DRUGS (5)
  1. PEG-INTERFERON ALFA 2A (RO 25-8310) [Suspect]
     Route: 058
     Dates: start: 20040430
  2. RIBAVIRIN [Suspect]
     Route: 048
     Dates: start: 20040430
  3. AMANTADINE [Suspect]
     Route: 048
     Dates: start: 20040430
  4. TELFAST [Concomitant]
     Dates: start: 20040715
  5. BETNELAN [Concomitant]
     Dates: start: 20040712

REACTIONS (4)
  - GLOMERULONEPHRITIS PROLIFERATIVE [None]
  - HYPOALBUMINAEMIA [None]
  - HYPOPROTEINAEMIA [None]
  - PROTEINURIA [None]
